FAERS Safety Report 10183748 (Version 2)
Quarter: 2014Q2

REPORT INFORMATION
  Report Type: Spontaneous
  Country: IN (occurrence: IN)
  Receive Date: 20140520
  Receipt Date: 20140520
  Transmission Date: 20141212
  Serious: Yes (Other)
  Sender: FDA-Public Use
  Company Number: PHHY2014IN056136

PATIENT
  Age: 26 Year
  Sex: Female
  Weight: 50 kg

DRUGS (5)
  1. DIGOXIN [Suspect]
     Indication: PULMONARY ARTERIAL HYPERTENSION
  2. MORPHINE [Suspect]
     Route: 042
  3. FUROSEMIDE [Suspect]
     Indication: ACUTE PULMONARY OEDEMA
     Dosage: 80 MG, UNK
     Route: 042
  4. FUROSEMIDE [Suspect]
     Dosage: 40 MG, EVERY 8 HOURS
  5. FUROSEMIDE [Suspect]
     Dosage: 40 MG, QD
     Route: 048

REACTIONS (3)
  - Oligohydramnios [Recovering/Resolving]
  - Wound dehiscence [Recovering/Resolving]
  - Maternal exposure during pregnancy [Unknown]
